FAERS Safety Report 24856949 (Version 1)
Quarter: 2025Q1

REPORT INFORMATION
  Report Type: Spontaneous
  Country: US (occurrence: None)
  Receive Date: 20250116
  Receipt Date: 20250116
  Transmission Date: 20250408
  Serious: Yes (Life-Threatening, Hospitalization)
  Sender: FDA-CTU
  Company Number: None

PATIENT
  Age: 67 Year
  Sex: Male
  Weight: 130.5 kg

DRUGS (2)
  1. JARDIANCE [Suspect]
     Active Substance: EMPAGLIFLOZIN
     Indication: Diabetes mellitus
     Dosage: FREQUENCY : DAILY;?
     Route: 048
  2. DEVICE [Concomitant]
     Active Substance: DEVICE

REACTIONS (4)
  - Fatigue [None]
  - Asthenia [None]
  - Fall [None]
  - Gangrene [None]

NARRATIVE: CASE EVENT DATE: 20220414
